FAERS Safety Report 25264001 (Version 1)
Quarter: 2025Q2

REPORT INFORMATION
  Report Type: Spontaneous
  Country: US (occurrence: None)
  Receive Date: 20250501
  Receipt Date: 20250501
  Transmission Date: 20250717
  Serious: Yes (Life-Threatening, Hospitalization, Disabling)
  Sender: FDA-CTU
  Company Number: None

PATIENT
  Age: 28 Year
  Sex: Male
  Weight: 67.5 kg

DRUGS (1)
  1. TRAMADOL [Suspect]
     Active Substance: TRAMADOL
     Indication: Product used for unknown indication
     Route: 048
     Dates: start: 20180110, end: 20180110

REACTIONS (13)
  - Hallucination, visual [None]
  - Hallucination, auditory [None]
  - Feeling abnormal [None]
  - Blepharospasm [None]
  - Myocardial infarction [None]
  - Dyspnoea [None]
  - Pulmonary pain [None]
  - Bladder disorder [None]
  - Nocturnal emission [None]
  - Hypoaesthesia [None]
  - Pruritus [None]
  - Pain [None]
  - Sensory disturbance [None]

NARRATIVE: CASE EVENT DATE: 20180111
